FAERS Safety Report 7051693-4 (Version None)
Quarter: 2010Q4

REPORT INFORMATION
  Report Type: 
  Country: None (occurrence: None)
  Receive Date: 20101012
  Receipt Date: 20100924
  Transmission Date: 20110411
  Serious: Yes (Other)
  Sender: FDA-Public Use
  Company Number: ACO_02381_2010

PATIENT
  Sex: Female

DRUGS (10)
  1. AMPYRA [Suspect]
     Indication: MULTIPLE SCLEROSIS
     Dosage: (10 MG BID ORAL)
     Route: 048
     Dates: start: 20100821, end: 20100918
  2. AVONEX [Concomitant]
  3. ADVIL LIQUI-GELS [Concomitant]
  4. BACLOFEN [Concomitant]
  5. CELEXA [Concomitant]
  6. IMITREX [Concomitant]
  7. MAXALT /01406501/ [Concomitant]
  8. NEURONTIN [Concomitant]
  9. KLONOPIN [Concomitant]
  10. MACRODANTIN [Concomitant]

REACTIONS (11)
  - AGITATION [None]
  - ANXIETY [None]
  - CONFUSIONAL STATE [None]
  - CONSTIPATION [None]
  - DELUSION [None]
  - HYPONATRAEMIA [None]
  - METABOLIC ENCEPHALOPATHY [None]
  - NO THERAPEUTIC RESPONSE [None]
  - PARANOIA [None]
  - PERSEVERATION [None]
  - URINARY TRACT INFECTION [None]
